FAERS Safety Report 11063184 (Version 1)
Quarter: 2015Q2

REPORT INFORMATION
  Report Type: Spontaneous
  Country: FR (occurrence: FR)
  Receive Date: 20150424
  Receipt Date: 20150424
  Transmission Date: 20150821
  Serious: Yes (Hospitalization)
  Sender: FDA-Public Use
  Company Number: FR-SA-2015SA050505

PATIENT
  Age: 77 Year
  Sex: Female

DRUGS (11)
  1. KALEORID [Concomitant]
     Active Substance: POTASSIUM CHLORIDE
     Dosage: PROLONGED-RELEASE TABLET
  2. ALLOPURINOL. [Concomitant]
     Active Substance: ALLOPURINOL
  3. INSULIN [Concomitant]
     Active Substance: INSULIN NOS
  4. APROVEL [Suspect]
     Active Substance: IRBESARTAN
     Indication: HYPERTENSION
     Dosage: FREQUENCY 2 DAY
     Route: 048
     Dates: end: 20130808
  5. KARDEGIC [Concomitant]
     Active Substance: ASPIRIN LYSINE
  6. FUMAFER [Concomitant]
     Active Substance: FERROUS FUMARATE
  7. EUPRESSYL [Interacting]
     Active Substance: URAPIDIL
     Indication: HYPERTENSION
     Route: 048
     Dates: end: 20130803
  8. DIAFUSOR [Interacting]
     Active Substance: NITROGLYCERIN
     Indication: ANGINA PECTORIS
     Dosage: FORM: TRANSDERMAL PATCH
     Route: 062
  9. LOVENOX [Concomitant]
     Active Substance: ENOXAPARIN SODIUM
     Dosage: 4,000 IU ANTI-XA / 0.4 ML SOLUTION FOR INJECTION IN PRE-FILLED SYRINGE
  10. SPECIAFOLDINE [Concomitant]
     Active Substance: FOLIC ACID
  11. BURINEX [Interacting]
     Active Substance: BUMETANIDE
     Route: 048
     Dates: end: 20130803

REACTIONS (3)
  - Fall [Unknown]
  - Drug interaction [Unknown]
  - Femoral neck fracture [Recovering/Resolving]

NARRATIVE: CASE EVENT DATE: 20130706
